FAERS Safety Report 6740045-X (Version None)
Quarter: 2010Q2

REPORT INFORMATION
  Report Type: 
  Country: None (occurrence: None)
  Receive Date: 20100525
  Receipt Date: 20100512
  Transmission Date: 20101027
  Serious: Yes (Other)
  Sender: FDA-Public Use
  Company Number: PHHY2010US30948

PATIENT
  Sex: Female

DRUGS (7)
  1. RECLAST [Suspect]
  2. RECLAST [Suspect]
     Dosage: UNK
  3. RECLAST [Suspect]
     Dosage: UNK
  4. CALCIUM [Concomitant]
  5. VITAMIN D [Concomitant]
  6. ASPIRIN [Concomitant]
  7. SIMVASTATIN [Concomitant]

REACTIONS (1)
  - COMPRESSION FRACTURE [None]
